FAERS Safety Report 20002709 (Version 2)
Quarter: 2021Q4

REPORT INFORMATION
  Report Type: Spontaneous
  Country: JP (occurrence: JP)
  Receive Date: 20211027
  Receipt Date: 20211112
  Transmission Date: 20220303
  Serious: Yes (Life-Threatening, Other)
  Sender: FDA-Public Use
  Company Number: JP-FERRING-EVA202101422FERRINGPH

PATIENT
  Sex: Female

DRUGS (1)
  1. DINOPROSTONE [Suspect]
     Active Substance: DINOPROSTONE
     Indication: Induction of cervix ripening
     Dosage: ONCE/SINGLE
     Route: 064
     Dates: start: 20210318, end: 20210318

REACTIONS (3)
  - Foetal heart rate deceleration abnormality [Recovering/Resolving]
  - Meconium aspiration syndrome [Unknown]
  - Neonatal asphyxia [Recovering/Resolving]

NARRATIVE: CASE EVENT DATE: 20210318
